FAERS Safety Report 15832538 (Version 4)
Quarter: 2019Q1

REPORT INFORMATION
  Report Type: Spontaneous
  Country: PL (occurrence: PL)
  Receive Date: 20190116
  Receipt Date: 20190226
  Transmission Date: 20190417
  Serious: Yes (Hospitalization)
  Sender: FDA-Public Use
  Company Number: PHHY2019PL004983

PATIENT
  Age: 52 Year
  Sex: Female

DRUGS (6)
  1. DULOXETINE. [Interacting]
     Active Substance: DULOXETINE
     Indication: MAJOR DEPRESSION
     Dosage: UNK
     Route: 065
  2. KETOPROFEN. [Concomitant]
     Active Substance: KETOPROFEN
     Indication: MYALGIA
     Dosage: 50 MG, TID
     Route: 065
  3. ZOLPIDEM [Suspect]
     Active Substance: ZOLPIDEM\ZOLPIDEM TARTRATE
     Indication: MAJOR DEPRESSION
     Dosage: 10 MG, QHS
     Route: 065
  4. CIPROFLOXACIN. [Interacting]
     Active Substance: CIPROFLOXACIN
     Dosage: 500 MG, TID
     Route: 048
  5. CIPROFLOXACIN. [Interacting]
     Active Substance: CIPROFLOXACIN
     Indication: URINARY TRACT INFECTION
     Dosage: 500 MG, BID
     Route: 048
  6. TRAMADOL. [Interacting]
     Active Substance: TRAMADOL
     Indication: MYALGIA
     Dosage: UNK
     Route: 065

REACTIONS (3)
  - Drug interaction [Recovered/Resolved]
  - Myalgia [Recovered/Resolved]
  - Hyperhidrosis [Recovered/Resolved]
